FAERS Safety Report 5076894-6 (Version None)
Quarter: 2006Q3

REPORT INFORMATION
  Report Type: 
  Country: None (occurrence: None)
  Receive Date: 20060725
  Receipt Date: 20060314
  Transmission Date: 20061208
  Serious: No
  Sender: FDA-Public Use
  Company Number: 200610803BWH

PATIENT
  Age: 75 Year
  Sex: Male
  Weight: 77.1115 kg

DRUGS (16)
  1. NEXAVAR [Suspect]
     Indication: RENAL CELL CARCINOMA STAGE UNSPECIFIED
     Dosage: 400 MG, BID, ORAL
     Route: 048
     Dates: start: 20060208
  2. NEXAVAR [Suspect]
  3. BETAPACE [Concomitant]
  4. ZETIA [Concomitant]
  5. LEXAPRO [Concomitant]
  6. ARICEPT [Concomitant]
  7. FOLIC ACID [Concomitant]
  8. FERGON [Concomitant]
  9. SENOKOT [SENNA ALEXANDRINA FRUIT] [Concomitant]
  10. COLACE [Concomitant]
  11. ANULOSE [Concomitant]
  12. CENTRUM [MINERALS NOS, VITAMINS NOS] [Concomitant]
  13. CALCIUM GLUCONATE [Concomitant]
  14. COUMADIN [Concomitant]
  15. MEGACE [Concomitant]
  16. POLYETHYLENE GLYCOL 3350 [Concomitant]

REACTIONS (21)
  - ALOPECIA [None]
  - AMNESIA [None]
  - BLOOD PRESSURE INCREASED [None]
  - CONFUSIONAL STATE [None]
  - CONSTIPATION [None]
  - COUGH [None]
  - DEPENDENT PERSONALITY DISORDER [None]
  - DYSPHONIA [None]
  - ERYTHEMA [None]
  - FATIGUE [None]
  - FEELING HOT [None]
  - GLOSSODYNIA [None]
  - PHARYNGOLARYNGEAL PAIN [None]
  - POLLAKIURIA [None]
  - RASH [None]
  - REGRESSIVE BEHAVIOUR [None]
  - SKIN WARM [None]
  - SPEECH DISORDER [None]
  - STOMACH DISCOMFORT [None]
  - TONGUE BITING [None]
  - WEIGHT DECREASED [None]
